FAERS Safety Report 4783992-0 (Version None)
Quarter: 2005Q3

REPORT INFORMATION
  Report Type: 
  Country: None (occurrence: None)
  Receive Date: 20050927
  Receipt Date: 20050809
  Transmission Date: 20060218
  Serious: No
  Sender: FDA-Public Use
  Company Number: USA0508104968

PATIENT
  Age: 11 Year
  Sex: Male
  Weight: 42 kg

DRUGS (1)
  1. STRATTERA [Suspect]
     Indication: ATTENTION DEFICIT/HYPERACTIVITY DISORDER
     Dosage: 50 MG DAY
     Dates: start: 20050710

REACTIONS (6)
  - ABNORMAL BEHAVIOUR [None]
  - AGGRESSION [None]
  - BLOOD PRESSURE INCREASED [None]
  - EXCITABILITY [None]
  - LABORATORY TEST ABNORMAL [None]
  - RHINORRHOEA [None]
